FAERS Safety Report 7649954-0 (Version None)
Quarter: 2011Q3

REPORT INFORMATION
  Report Type: 
  Country: None (occurrence: None)
  Receive Date: 20110802
  Receipt Date: 20110720
  Transmission Date: 20111222
  Serious: Yes (Other)
  Sender: FDA-Public Use
  Company Number: US-BAYER-2011-010224

PATIENT
  Age: 35 Year
  Sex: Female
  Weight: 77 kg

DRUGS (8)
  1. YASMIN [Suspect]
     Dosage: UNK
     Dates: start: 20090301, end: 20100501
  2. YAZ [Suspect]
     Dosage: UNK
     Route: 048
     Dates: start: 20090301, end: 20100501
  3. YAZ [Suspect]
     Indication: CONTRACEPTION
     Dosage: UNK
     Dates: start: 19980901, end: 20090101
  4. YASMIN [Suspect]
     Indication: CONTRACEPTION
     Dosage: UNK
     Route: 048
     Dates: start: 19980901, end: 20090101
  5. ADDERALL 10 [Concomitant]
     Indication: ATTENTION DEFICIT/HYPERACTIVITY DISORDER
     Dosage: 30 MG, UNK
     Dates: start: 20090301
  6. KLONOPIN [Concomitant]
     Indication: ANXIETY
     Dosage: 1 MG, UNK
     Route: 048
     Dates: start: 20080301, end: 20090301
  7. KLONOPIN [Concomitant]
     Indication: INSOMNIA
     Dosage: 2 MG, UNK
     Dates: start: 20090301
  8. ADDERALL 10 [Concomitant]
     Indication: ANXIETY

REACTIONS (6)
  - PAIN [None]
  - CHOLECYSTECTOMY [None]
  - CHOLELITHIASIS [None]
  - INJURY [None]
  - NAUSEA [None]
  - VOMITING [None]
